FAERS Safety Report 24587878 (Version 1)
Quarter: 2024Q4

REPORT INFORMATION
  Report Type: Spontaneous
  Country: BR (occurrence: BR)
  Receive Date: 20241107
  Receipt Date: 20241107
  Transmission Date: 20250115
  Serious: Yes (Other)
  Sender: RANBAXY
  Company Number: BR-SUN PHARMACEUTICAL INDUSTRIES LTD-2024R1-477617

PATIENT
  Age: 56 Year
  Sex: Female

DRUGS (18)
  1. PEMETREXED [Suspect]
     Active Substance: PEMETREXED
     Indication: Lung adenocarcinoma
     Dosage: UNK
     Route: 065
  2. PEMETREXED [Suspect]
     Active Substance: PEMETREXED
     Indication: Metastases to liver
  3. PEMETREXED [Suspect]
     Active Substance: PEMETREXED
     Indication: Metastases to lymph nodes
  4. CARBOPLATIN [Suspect]
     Active Substance: CARBOPLATIN
     Indication: Lung adenocarcinoma
     Dosage: UNK
     Route: 065
  5. CARBOPLATIN [Suspect]
     Active Substance: CARBOPLATIN
     Indication: Metastases to liver
  6. CARBOPLATIN [Suspect]
     Active Substance: CARBOPLATIN
     Indication: Metastases to lymph nodes
  7. DOCETAXEL [Suspect]
     Active Substance: DOCETAXEL
     Indication: Lung adenocarcinoma
     Dosage: UNK
     Route: 065
  8. DOCETAXEL [Suspect]
     Active Substance: DOCETAXEL
     Indication: Metastases to liver
  9. DOCETAXEL [Suspect]
     Active Substance: DOCETAXEL
     Indication: Metastases to lymph nodes
  10. GEMCITABINE [Suspect]
     Active Substance: GEMCITABINE
     Indication: Lung adenocarcinoma
     Dosage: UNK
     Route: 065
  11. GEMCITABINE [Suspect]
     Active Substance: GEMCITABINE
     Indication: Metastases to liver
  12. GEMCITABINE [Suspect]
     Active Substance: GEMCITABINE
     Indication: Metastases to lymph nodes
  13. PEMBROLIZUMAB [Suspect]
     Active Substance: PEMBROLIZUMAB
     Indication: Lung adenocarcinoma
     Dosage: UNK
     Route: 065
  14. PEMBROLIZUMAB [Suspect]
     Active Substance: PEMBROLIZUMAB
     Indication: Metastases to liver
  15. PEMBROLIZUMAB [Suspect]
     Active Substance: PEMBROLIZUMAB
     Indication: Metastases to lymph nodes
  16. RAMUCIRUMAB [Suspect]
     Active Substance: RAMUCIRUMAB
     Indication: Lung adenocarcinoma
     Dosage: UNK
     Route: 065
  17. RAMUCIRUMAB [Suspect]
     Active Substance: RAMUCIRUMAB
     Indication: Metastases to liver
  18. RAMUCIRUMAB [Suspect]
     Active Substance: RAMUCIRUMAB
     Indication: Metastases to lymph nodes

REACTIONS (1)
  - Neoplasm progression [Unknown]
